FAERS Safety Report 7701274-1 (Version None)
Quarter: 2011Q3

REPORT INFORMATION
  Report Type: 
  Country: None (occurrence: None)
  Receive Date: 20110822
  Receipt Date: 20110819
  Transmission Date: 20111222
  Serious: Yes (Hospitalization)
  Sender: FDA-Public Use
  Company Number: ES-VIIV HEALTHCARE LIMITED-B0741052A

PATIENT
  Age: 57 Year
  Sex: Male

DRUGS (1)
  1. ABACAVIR SULFATE AND LAMIVUDINE [Suspect]
     Indication: HIV INFECTION
     Route: 048
     Dates: start: 20110727, end: 20110731

REACTIONS (9)
  - HYPERSENSITIVITY [None]
  - HEADACHE [None]
  - NAUSEA [None]
  - PYREXIA [None]
  - VOMITING [None]
  - MALAISE [None]
  - ABDOMINAL PAIN [None]
  - PAIN IN EXTREMITY [None]
  - DYSURIA [None]
